FAERS Safety Report 20788042 (Version 1)
Quarter: 2022Q2

REPORT INFORMATION
  Report Type: Spontaneous
  Country: SE (occurrence: SE)
  Receive Date: 20220505
  Receipt Date: 20220505
  Transmission Date: 20220721
  Serious: Yes (Hospitalization)
  Sender: FDA-Public Use
  Company Number: None

PATIENT
  Age: 86 Year
  Sex: Female

DRUGS (10)
  1. IBUPROFEN [Suspect]
     Active Substance: IBUPROFEN
     Indication: Sciatica
     Dosage: 400MG 1X3
     Route: 048
     Dates: start: 20220101
  2. LOSARTAN/HYDROCHLOROTHIAZIDE KRKA [Concomitant]
     Indication: Product used for unknown indication
     Dosage: 1X1 UNTIL FURTHER NOTICE
     Route: 065
     Dates: start: 20210930
  3. ATENOLOL [Concomitant]
     Active Substance: ATENOLOL
     Indication: Product used for unknown indication
     Dosage: 1X1 UNTIL FURTHER NOTICE
     Route: 065
     Dates: start: 20190513
  4. CALCIUM CARBONATE\CHOLECALCIFEROL [Concomitant]
     Active Substance: CALCIUM CARBONATE\CHOLECALCIFEROL
     Indication: Product used for unknown indication
     Dosage: AS PRESCRIBED
     Route: 065
     Dates: start: 20180219, end: 20220325
  5. MAGNESIUM HYDROXIDE [Concomitant]
     Active Substance: MAGNESIUM HYDROXIDE
     Indication: Product used for unknown indication
     Dosage: 1X2 UNTIL FURTHER NOTICE
     Route: 065
     Dates: start: 20180516
  6. ATORVASTATIN [Concomitant]
     Active Substance: ATORVASTATIN
     Indication: Product used for unknown indication
     Dosage: 1X1 UNTIL FURTHER NOTICE
     Route: 065
     Dates: start: 20180517
  7. POTASSIUM CHLORIDE [Concomitant]
     Active Substance: POTASSIUM CHLORIDE
     Indication: Product used for unknown indication
     Dosage: 2 TABLET AT 08:00 AM + 1 TABLET AT 06:00 PM UNTIL FURTHER NOTICE
     Route: 065
     Dates: start: 20200903, end: 20220325
  8. CALCIUM CARBONATE\CHOLECALCIFEROL [Concomitant]
     Active Substance: CALCIUM CARBONATE\CHOLECALCIFEROL
     Indication: Product used for unknown indication
     Dosage: 0+0+0+2 UNTIL FURTHER NOTICE
     Route: 065
     Dates: start: 20211007
  9. PREDNISOLONE [Concomitant]
     Active Substance: PREDNISOLONE
     Indication: Product used for unknown indication
     Dosage: AS PRESCRIBED
     Route: 065
     Dates: start: 20210930, end: 20220405
  10. PROLIA [Concomitant]
     Active Substance: DENOSUMAB
     Indication: Product used for unknown indication
     Dosage: AS PRESCRIBED
     Route: 065
     Dates: start: 20180219

REACTIONS (2)
  - Duodenal ulcer perforation [Recovering/Resolving]
  - Duodenal ulcer haemorrhage [Recovering/Resolving]

NARRATIVE: CASE EVENT DATE: 20220325
